FAERS Safety Report 8762945 (Version 1)
Quarter: 2012Q4

REPORT INFORMATION
  Report Type: 
  Country: US (occurrence: None)
  Receive Date: 20120830
  Receipt Date: 20120830
  Transmission Date: 20130627
  Serious: Yes (Hospitalization)
  Sender: FDA-Public Use
  Company Number: None

PATIENT
  Age: 10 Year
  Sex: Female
  Weight: 36.74 kg

DRUGS (1)
  1. AMPHETAMINE ADIPATE\DEXTROAMPHETAMINE [Suspect]
     Dates: start: 20110925, end: 20111122

REACTIONS (2)
  - Cholelithiasis [None]
  - Weight decreased [None]
